FAERS Safety Report 11018038 (Version 2)
Quarter: 2015Q2

REPORT INFORMATION
  Report Type: Spontaneous
  Country: US (occurrence: US)
  Receive Date: 20150412
  Receipt Date: 20150524
  Transmission Date: 20150821
  Serious: No
  Sender: FDA-Public Use
  Company Number: US-JNJFOC-20141009456

PATIENT
  Age: 65 Year
  Sex: Female

DRUGS (2)
  1. DOXORUBICIN [Suspect]
     Active Substance: DOXORUBICIN
     Indication: METASTATIC UTERINE CANCER
     Dosage: ON DAY 1 OF EACH 21-DAY CYCLE
     Route: 040
  2. TH-302 [Suspect]
     Active Substance: EVOFOSFAMIDE
     Indication: METASTATIC UTERINE CANCER
     Dosage: 30 MINUTES ON DAYS 1 AND 8 OF A 21-DAY CYCLE
     Route: 042

REACTIONS (2)
  - Incorrect route of drug administration [Unknown]
  - Product use issue [Unknown]
